FAERS Safety Report 12258801 (Version 1)
Quarter: 2016Q2

REPORT INFORMATION
  Report Type: Spontaneous
  Country: US (occurrence: US)
  Receive Date: 20160412
  Receipt Date: 20160412
  Transmission Date: 20160815
  Serious: No
  Sender: FDA-Public Use
  Company Number: US-SA-2015SA059837

PATIENT
  Sex: Female

DRUGS (3)
  1. ALLEGRA [Suspect]
     Active Substance: FEXOFENADINE HYDROCHLORIDE
     Indication: HEADACHE
     Dosage: START DATE: ABOUT 6 DAYS?FORM: GEL CAPSULE
     Route: 065
     Dates: start: 201504
  2. ALLEGRA [Suspect]
     Active Substance: FEXOFENADINE HYDROCHLORIDE
     Indication: RHINORRHOEA
     Dosage: START DATE: ABOUT 6 DAYS?FORM: GEL CAPSULE
     Route: 065
     Dates: start: 201504
  3. ALLEGRA [Suspect]
     Active Substance: FEXOFENADINE HYDROCHLORIDE
     Indication: HYPERSENSITIVITY
     Dosage: START DATE: ABOUT 6 DAYS?FORM: GEL CAPSULE
     Route: 065
     Dates: start: 201504

REACTIONS (1)
  - Drug ineffective [Unknown]
